FAERS Safety Report 6649724-6 (Version None)
Quarter: 2010Q1

REPORT INFORMATION
  Report Type: 
  Country: None (occurrence: None)
  Receive Date: 20100324
  Receipt Date: 20100324
  Transmission Date: 20100710
  Serious: Yes (Hospitalization, Disabling)
  Sender: FDA-Public Use
  Company Number: None

PATIENT
  Sex: Male
  Weight: 108 kg

DRUGS (16)
  1. ZOMETA [Suspect]
     Indication: METASTASES TO BONE
     Dosage: 4MG EVERY 6 WEEKS IV
     Route: 042
     Dates: start: 20080301, end: 20091201
  2. DIOVAN [Concomitant]
  3. COREG [Concomitant]
  4. CASODEX [Concomitant]
  5. CRESTOR [Concomitant]
  6. ALLOPURINOL [Concomitant]
  7. ZOLADEX [Concomitant]
  8. COUMADIN [Concomitant]
  9. GLUCOSAMINE [Concomitant]
  10. OCULAR MULTIVITAMIN [Concomitant]
  11. ASPIRIN [Concomitant]
  12. CENTRUM SILVER [Concomitant]
  13. VITAMIN B-12 [Concomitant]
  14. VITAMIN C [Concomitant]
  15. CALCIUM [Concomitant]
  16. FISH OIL [Concomitant]

REACTIONS (17)
  - ARTHROPATHY [None]
  - BONE DISORDER [None]
  - BONE INFARCTION [None]
  - FALL [None]
  - FEMUR FRACTURE [None]
  - GAIT DISTURBANCE [None]
  - HIP FRACTURE [None]
  - INJURY [None]
  - JOINT EFFUSION [None]
  - LIMB INJURY [None]
  - METASTASES TO BONE [None]
  - OSTEOARTHRITIS [None]
  - OSTEONECROSIS [None]
  - OSTEOSCLEROSIS [None]
  - PATHOLOGICAL FRACTURE [None]
  - PROSTATOMEGALY [None]
  - RIB FRACTURE [None]
